FAERS Safety Report 23109724 (Version 1)
Quarter: 2023Q4

REPORT INFORMATION
  Report Type: Report from Study
  Country: US (occurrence: None)
  Receive Date: 20231026
  Receipt Date: 20231026
  Transmission Date: 20240110
  Serious: Yes (Other)
  Sender: FDA-Public Use
  Company Number: 2023A238156

PATIENT
  Sex: Female

DRUGS (2)
  1. LYNPARZA [Suspect]
     Active Substance: OLAPARIB
     Dosage: 150 MG 1 TABLET IN THE MORNING
     Route: 048
  2. LYNPARZA [Suspect]
     Active Substance: OLAPARIB
     Dosage: 150 MG 1 TABLET IN THE MORNING
     Route: 048

REACTIONS (6)
  - Tumour marker increased [Unknown]
  - Swelling [Recovered/Resolved]
  - Rash [Recovered/Resolved]
  - Rhinorrhoea [Unknown]
  - Hypersensitivity [Unknown]
  - Product dose omission issue [Unknown]
